FAERS Safety Report 8508926-4 (Version None)
Quarter: 2012Q3

REPORT INFORMATION
  Report Type: 
  Country: None (occurrence: None)
  Receive Date: 20120703
  Receipt Date: 20120619
  Transmission Date: 20120928
  Serious: Yes (Hospitalization)
  Sender: FDA-Public Use
  Company Number: FK201201745

PATIENT
  Age: 7 Decade
  Sex: Male

DRUGS (3)
  1. CISPLATIN [Suspect]
     Indication: GASTRIC CANCER
     Dosage: 60 MG/M2, INTRAVENOUS (NOT OTHERWISE SPECIFIED))
     Route: 042
  2. DOCETAXEL [Suspect]
     Indication: GASTRIC CANCER
     Dosage: 40 MG/M2, INTRAVENOUS (NOT OTHERWISE SPECIFIED))
     Route: 042
  3. GIMERACIL/OTERACIL/TEGAFUR (TS 1) [Suspect]
     Indication: GASTRIC CANCER
     Dosage: 80 MG/M2, ORAL
     Route: 048

REACTIONS (7)
  - PERITONITIS [None]
  - DIARRHOEA [None]
  - ASCITES [None]
  - ABDOMINAL PAIN [None]
  - SHOCK [None]
  - DECREASED APPETITE [None]
  - GASTRIC PERFORATION [None]
